FAERS Safety Report 17878891 (Version 1)
Quarter: 2020Q2

REPORT INFORMATION
  Report Type: Spontaneous
  Country: GB (occurrence: GB)
  Receive Date: 20200610
  Receipt Date: 20200610
  Transmission Date: 20200714
  Serious: Yes (Other)
  Sender: FDA-Public Use
  Company Number: GB-ACCORD-184638

PATIENT
  Age: 67 Year
  Sex: Male
  Weight: 77 kg

DRUGS (15)
  1. PENTASA [Concomitant]
     Active Substance: MESALAMINE
  2. VITAMINS NOS [Concomitant]
     Active Substance: VITAMINS
  3. TAMSULOSIN/TAMSULOSIN HYDROCHLORIDE [Concomitant]
     Active Substance: TAMSULOSIN HYDROCHLORIDE
  4. ATORVASTATIN/ATORVASTATIN CALCIUM [Suspect]
     Active Substance: ATORVASTATIN CALCIUM
     Indication: BLOOD CHOLESTEROL INCREASED
     Route: 048
     Dates: start: 20140915, end: 20200209
  5. SALBUTAMOL [Concomitant]
     Active Substance: ALBUTEROL
     Route: 055
  6. ERGOCALCIFEROL. [Concomitant]
     Active Substance: ERGOCALCIFEROL
  7. RAMIPRIL. [Concomitant]
     Active Substance: RAMIPRIL
  8. HYDROMOL [Concomitant]
  9. FYBOGEL [Concomitant]
     Active Substance: PLANTAGO OVATA SEED
  10. DERMOL [Concomitant]
     Active Substance: BENZALKONIUM CHLORIDE\CHLORHEXIDINE HYDROCHLORIDE\ISOPROPYL MYRISTATE\PARAFFIN
  11. PROTOPIC [Concomitant]
     Active Substance: TACROLIMUS
  12. MESALAZINE [Concomitant]
     Active Substance: MESALAMINE
     Dosage: 1G/100ML.
  13. ASCORBIC ACID. [Concomitant]
     Active Substance: ASCORBIC ACID
  14. MOMETASONE [Concomitant]
     Active Substance: MOMETASONE
  15. INCRUSE ELLIPTA [Concomitant]
     Active Substance: UMECLIDINIUM BROMIDE

REACTIONS (7)
  - Abdominal tenderness [Recovering/Resolving]
  - Inguinal hernia [Recovering/Resolving]
  - Condition aggravated [Unknown]
  - Back pain [Recovering/Resolving]
  - Irritable bowel syndrome [Recovering/Resolving]
  - Abdominal discomfort [Recovering/Resolving]
  - Abdominal pain lower [Recovering/Resolving]

NARRATIVE: CASE EVENT DATE: 20160101
